FAERS Safety Report 9136545 (Version 1)
Quarter: 2013Q1

REPORT INFORMATION
  Report Type: Spontaneous
  Country: US (occurrence: US)
  Receive Date: 20130304
  Receipt Date: 20130304
  Transmission Date: 20140127
  Serious: No
  Sender: FDA-Public Use
  Company Number: US-ABBOTT-12P-163-0941322-00

PATIENT
  Sex: Male
  Weight: 74.91 kg

DRUGS (4)
  1. ANDROGEL 1% [Suspect]
     Indication: BLOOD TESTOSTERONE DECREASED
     Dosage: ONE PACKET PER DAY
     Dates: start: 201205
  2. ALLERGY MEDICATION [Concomitant]
     Indication: HYPERSENSITIVITY
  3. HAWTHORNE [Concomitant]
     Indication: CARDIOVASCULAR EVENT PROPHYLAXIS
  4. ADRENAL GLAND EXTRACT [Concomitant]
     Indication: SUPPLEMENTATION THERAPY

REACTIONS (2)
  - Blood testosterone decreased [Not Recovered/Not Resolved]
  - Hot flush [Not Recovered/Not Resolved]
